FAERS Safety Report 7928913-4 (Version None)
Quarter: 2011Q4

REPORT INFORMATION
  Report Type: 
  Country: None (occurrence: None)
  Receive Date: 20111118
  Receipt Date: 20111104
  Transmission Date: 20120403
  Serious: Yes (Hospitalization, Other)
  Sender: FDA-Public Use
  Company Number: BR-WATSON-2011-18425

PATIENT
  Age: 26 Year
  Sex: Female

DRUGS (2)
  1. PREDNISONE TAB [Suspect]
     Indication: IMMUNOSUPPRESSION
     Dosage: 15 MG, DAILY
     Route: 065
     Dates: start: 19711101
  2. AZATHIOPRINE [Suspect]
     Indication: IMMUNOSUPPRESSION
     Dosage: 150 MG, DAILY
     Route: 065
     Dates: start: 19711101

REACTIONS (5)
  - CHRONIC MYELOID LEUKAEMIA [None]
  - CATARACT [None]
  - OSTEONECROSIS [None]
  - CERVIX CARCINOMA STAGE 0 [None]
  - MENINGITIS CRYPTOCOCCAL [None]
